FAERS Safety Report 10013026 (Version 1)
Quarter: 2014Q1

REPORT INFORMATION
  Report Type: Spontaneous
  Country: FR (occurrence: FR)
  Receive Date: 20140314
  Receipt Date: 20140314
  Transmission Date: 20141002
  Serious: Yes (Hospitalization)
  Sender: FDA-Public Use
  Company Number: FR-ASTRAZENECA-2014SE16795

PATIENT
  Age: 79 Year
  Sex: Male

DRUGS (13)
  1. INEXIUM [Suspect]
     Route: 048
     Dates: end: 20140129
  2. AMOXICILLINE PANPHARMA [Suspect]
     Indication: BACTERAEMIA
     Route: 042
     Dates: start: 20131229, end: 20140127
  3. AMOXICILLINE PANPHARMA [Suspect]
     Indication: BACTERAEMIA
     Route: 042
     Dates: start: 20140127, end: 20140129
  4. JANUVIA [Suspect]
     Indication: TYPE 2 DIABETES MELLITUS
     Route: 048
     Dates: end: 20140129
  5. TRIFLUCAN [Suspect]
     Route: 048
     Dates: start: 20140118, end: 20140127
  6. DEROXAT [Concomitant]
  7. XANAX [Concomitant]
  8. KARDEGIC [Concomitant]
  9. LOXEN [Concomitant]
     Dates: start: 201312
  10. LOVENOX [Concomitant]
     Dates: start: 201312
  11. CALCIPARINE [Concomitant]
     Dates: start: 201312
  12. DIFFU-K [Concomitant]
     Dates: start: 201312
  13. VERAPAMIL [Concomitant]

REACTIONS (1)
  - Renal failure acute [Recovered/Resolved]
